FAERS Safety Report 6896399-7 (Version None)
Quarter: 2010Q3

REPORT INFORMATION
  Report Type: 
  Country: None (occurrence: None)
  Receive Date: 20100726
  Receipt Date: 20100712
  Transmission Date: 20110219
  Serious: Yes (Hospitalization)
  Sender: FDA-Public Use
  Company Number: AEUSA201000219

PATIENT
  Age: 60 Year
  Sex: Female
  Weight: 71.6683 kg

DRUGS (12)
  1. GAMUNEX [Suspect]
     Indication: MYASTHENIA GRAVIS
     Dosage: 35 GM; QOW; IV, 45 GM; QOW; IV
     Route: 042
     Dates: start: 20100527, end: 20100527
  2. GAMUNEX [Suspect]
     Indication: MYASTHENIA GRAVIS
     Dosage: 35 GM; QOW; IV, 45 GM; QOW; IV
     Route: 042
     Dates: start: 20091001
  3. GAMUNEX [Suspect]
     Indication: MYASTHENIA GRAVIS
     Dosage: 35 GM; QOW; IV, 45 GM; QOW; IV
     Route: 042
     Dates: start: 20100610
  4. GAMUNEX [Suspect]
  5. IMURAN [Suspect]
     Indication: MYASTHENIA GRAVIS
     Dosage: 100 MG;, 25 MG;
  6. PREDNISONE [Concomitant]
  7. SIMVASTATIN [Concomitant]
  8. MESTINON [Concomitant]
  9. LEXAPRO [Concomitant]
  10. SYNTHROID [Concomitant]
  11. LEVEMIR [Concomitant]
  12. BENADRYL [Concomitant]

REACTIONS (2)
  - BALANCE DISORDER [None]
  - SUBARACHNOID HAEMORRHAGE [None]
